FAERS Safety Report 7671091-X (Version None)
Quarter: 2011Q3

REPORT INFORMATION
  Report Type: 
  Country: None (occurrence: None)
  Receive Date: 20110808
  Receipt Date: 20110808
  Transmission Date: 20111222
  Serious: Yes (Hospitalization)
  Sender: FDA-Public Use
  Company Number: None

PATIENT
  Age: 63 Year
  Sex: Male
  Weight: 110.2 kg

DRUGS (2)
  1. SULFAMETHOXAZOLE AND TRIMETHOPRIM [Suspect]
     Indication: CELLULITIS
     Dosage: 1 TAB BID PO
     Route: 048
     Dates: start: 20110321, end: 20110325
  2. CEPHALEXIN [Suspect]
     Indication: CELLULITIS
     Dosage: 500MG TID PO
     Route: 048
     Dates: start: 20110321, end: 20110321

REACTIONS (4)
  - URTICARIA [None]
  - RASH [None]
  - BLOOD BLISTER [None]
  - PRURITUS [None]
